FAERS Safety Report 8826340 (Version 1)
Quarter: 2012Q4

REPORT INFORMATION
  Report Type: 
  Country: BR (occurrence: BR)
  Receive Date: 20121008
  Receipt Date: 20121008
  Transmission Date: 20130627
  Serious: Yes (Other)
  Sender: FDA-Public Use
  Company Number: BR-JNJFOC-20120913485

PATIENT
  Age: 28 Year
  Sex: Female
  Weight: 80 kg

DRUGS (1)
  1. EVRA [Suspect]
     Indication: CONTRACEPTION
     Route: 062
     Dates: start: 201203

REACTIONS (3)
  - C-reactive protein increased [Unknown]
  - Abdominal pain [Recovered/Resolved]
  - Application site discolouration [Not Recovered/Not Resolved]
